FAERS Safety Report 23687506 (Version 1)
Quarter: 2024Q1

REPORT INFORMATION
  Report Type: Spontaneous
  Country: US (occurrence: None)
  Receive Date: 20240329
  Receipt Date: 20240329
  Transmission Date: 20240410
  Serious: Yes (Death)
  Sender: FDA-Public Use
  Company Number: None

PATIENT
  Age: 53 Year
  Sex: Female
  Weight: 65.8 kg

DRUGS (1)
  1. MEMANTINE HYDROCHLORIDE [Suspect]
     Active Substance: MEMANTINE HYDROCHLORIDE
     Dates: end: 20240323

REACTIONS (6)
  - Fatigue [None]
  - Dyspnoea [None]
  - Hypersomnia [None]
  - Mobility decreased [None]
  - Asthenia [None]
  - Hospice care [None]

NARRATIVE: CASE EVENT DATE: 20240323
